FAERS Safety Report 7779065-5 (Version None)
Quarter: 2011Q3

REPORT INFORMATION
  Report Type: 
  Country: None (occurrence: None)
  Receive Date: 20110926
  Receipt Date: 20110922
  Transmission Date: 20111222
  Serious: Yes (Other)
  Sender: FDA-Public Use
  Company Number: TW-ROXANE LABORATORIES, INC.-2011-RO-01333RO

PATIENT
  Age: 34 Year
  Sex: Female

DRUGS (2)
  1. ZOLPIDEM [Suspect]
     Dosage: 10 MG
  2. ZOLPIDEM [Suspect]

REACTIONS (4)
  - DRUG WITHDRAWAL SYNDROME [None]
  - INSOMNIA [None]
  - DRUG DEPENDENCE [None]
  - DELIRIUM [None]
